FAERS Safety Report 9737435 (Version 2)
Quarter: 2013Q4

REPORT INFORMATION
  Report Type: Report from Study
  Country: US (occurrence: US)
  Receive Date: 20131206
  Receipt Date: 20131206
  Transmission Date: 20140711
  Serious: Yes (Death, Hospitalization)
  Sender: FDA-Public Use
  Company Number: US-ONYX-2013-1820

PATIENT
  Age: 65 Year
  Sex: Male
  Weight: 78.54 kg

DRUGS (3)
  1. CARFILZOMIB [Suspect]
     Indication: PLASMA CELL MYELOMA
     Route: 042
     Dates: start: 20131023, end: 20131024
  2. CARFILZOMIB [Suspect]
     Route: 042
     Dates: start: 20131030, end: 20131107
  3. DEXAMETHASONE [Concomitant]
     Indication: PLASMA CELL MYELOMA
     Route: 042
     Dates: start: 20131023, end: 20131107

REACTIONS (2)
  - Cellulitis [Unknown]
  - Disease progression [Fatal]
